FAERS Safety Report 7786777-6 (Version None)
Quarter: 2011Q3

REPORT INFORMATION
  Report Type: 
  Country: None (occurrence: None)
  Receive Date: 20110929
  Receipt Date: 20110926
  Transmission Date: 20111222
  Serious: Yes (Other)
  Sender: FDA-Public Use
  Company Number: BR-PFIZER INC-2011228561

PATIENT
  Sex: Female

DRUGS (5)
  1. TRAZODONE HCL [Suspect]
  2. FLUOXETINE [Suspect]
  3. PAROXETINE HCL [Suspect]
  4. LYRICA [Suspect]
     Indication: FIBROMYALGIA
     Dosage: 75 MG, 2X/DAY
     Route: 048
  5. LYRICA [Suspect]
     Dosage: UNK
     Route: 048
     Dates: start: 20110924

REACTIONS (7)
  - URINARY RETENTION [None]
  - NIGHTMARE [None]
  - DIZZINESS [None]
  - CONSTIPATION [None]
  - NAUSEA [None]
  - URINARY TRACT INFECTION [None]
  - ABNORMAL DREAMS [None]
